FAERS Safety Report 10181403 (Version 3)
Quarter: 2014Q3

REPORT INFORMATION
  Report Type: Report from Study
  Country: KR (occurrence: KR)
  Receive Date: 20140519
  Receipt Date: 20140811
  Transmission Date: 20150326
  Serious: Yes (Hospitalization)
  Sender: FDA-Public Use
  Company Number: KR-SA-2014SA060816

PATIENT
  Age: 56 Year
  Sex: Female
  Weight: 72 kg

DRUGS (4)
  1. LANTUS [Suspect]
     Active Substance: INSULIN GLARGINE
     Indication: DIABETES MELLITUS
     Dosage: THERAPY STOP DATE CAPTURED AS UNK DUE TO AWARE RESTRICTIONS.
     Route: 058
     Dates: start: 201403
  2. APIDRA [Suspect]
     Active Substance: INSULIN GLULISINE
     Indication: DIABETES MELLITUS
     Dosage: DOSE:16-16-16 UNIT DOSE:16 UNIT(S)
     Route: 058
     Dates: end: 2014
  3. LANTUS [Suspect]
     Active Substance: INSULIN GLARGINE
     Indication: DIABETES MELLITUS
     Dosage: DOSE:66 UNIT(S)
     Route: 058
     Dates: start: 2014
  4. APIDRA [Suspect]
     Active Substance: INSULIN GLULISINE
     Indication: DIABETES MELLITUS
     Dosage: DOSE:24 UNIT(S)
     Route: 058
     Dates: start: 2014

REACTIONS (3)
  - Urinary incontinence [Recovered/Resolved]
  - Spinal column stenosis [Recovered/Resolved]
  - Back pain [Recovered/Resolved]

NARRATIVE: CASE EVENT DATE: 2014
